FAERS Safety Report 5274616-7 (Version None)
Quarter: 2007Q1

REPORT INFORMATION
  Report Type: 
  Country: None (occurrence: None)
  Receive Date: 20070320
  Receipt Date: 20070308
  Transmission Date: 20070707
  Serious: Yes (Hospitalization)
  Sender: FDA-Public Use
  Company Number: 2007311179

PATIENT
  Sex: Female
  Weight: 68 kg

DRUGS (1)
  1. ROGAINE [Suspect]
     Indication: ALOPECIA
     Dosage: 1 ML TWICE DAILY (1 ML, 2 IN 1 D), TOPICAL
     Route: 061
     Dates: start: 20070101, end: 20070201

REACTIONS (3)
  - HEART RATE INCREASED [None]
  - JOINT SWELLING [None]
  - OEDEMA PERIPHERAL [None]
